FAERS Safety Report 14617244 (Version 1)
Quarter: 2018Q1

REPORT INFORMATION
  Report Type: Report from Study
  Country: US (occurrence: US)
  Receive Date: 20180309
  Receipt Date: 20180309
  Transmission Date: 20180509
  Serious: Yes (Other)
  Sender: FDA-Public Use
  Company Number: US-TORRENT-00005771

PATIENT
  Age: 13 Year
  Sex: Female

DRUGS (1)
  1. TOPIRAMATE. [Suspect]
     Active Substance: TOPIRAMATE
     Indication: MIGRAINE

REACTIONS (7)
  - Off label use [Unknown]
  - Anorexia nervosa [Unknown]
  - Asthenia [Unknown]
  - Amenorrhoea [Unknown]
  - Sinus bradycardia [Unknown]
  - Electrocardiogram ST-T change [Unknown]
  - Weight decreased [Unknown]
